FAERS Safety Report 11060658 (Version 3)
Quarter: 2015Q4

REPORT INFORMATION
  Report Type: Report from Study
  Country: CA (occurrence: CA)
  Receive Date: 20150423
  Receipt Date: 20151013
  Transmission Date: 20160304
  Serious: Yes (Other)
  Sender: FDA-Public Use
  Company Number: PHHY2014CA057206

PATIENT
  Age: 72 Year
  Sex: Female

DRUGS (6)
  1. SANDOSTATIN LAR DEPOT [Suspect]
     Active Substance: OCTREOTIDE ACETATE
     Indication: NEUROENDOCRINE TUMOUR
     Dosage: 30 MG, QMO (EVERY 4 WEEKS)
     Route: 030
     Dates: start: 20140515, end: 20150707
  2. NORVASC [Concomitant]
     Active Substance: AMLODIPINE BESYLATE
     Indication: HYPERTENSION
     Dosage: 1 DF, QHS
     Route: 065
  3. NORVASC [Concomitant]
     Active Substance: AMLODIPINE BESYLATE
     Dosage: 2 DF, QHS
     Route: 065
  4. NORVASC [Concomitant]
     Active Substance: AMLODIPINE BESYLATE
     Dosage: 5 MG, QD
     Route: 065
     Dates: start: 20150317
  5. NORVASC [Concomitant]
     Active Substance: AMLODIPINE BESYLATE
     Dosage: 3.75 MG, QD
     Route: 065
  6. SANDOSTATIN [Suspect]
     Active Substance: OCTREOTIDE ACETATE
     Indication: NEUROENDOCRINE TUMOUR
     Dosage: 100 UG, TID FOR 3 WEEKS
     Route: 058
     Dates: start: 20140428, end: 20140512

REACTIONS (22)
  - Blood pressure systolic increased [Unknown]
  - Dizziness [Unknown]
  - Abdominal pain upper [Recovering/Resolving]
  - Hepatic neoplasm [Unknown]
  - Fall [Unknown]
  - Fatigue [Unknown]
  - Bradycardia [Unknown]
  - Vomiting [Recovered/Resolved]
  - Abdominal distension [Recovering/Resolving]
  - Abdominal pain [Recovering/Resolving]
  - Injection site erythema [Recovered/Resolved]
  - Asthenia [Unknown]
  - Wrist fracture [Unknown]
  - Arrhythmia [Unknown]
  - Gastrointestinal disorder [Unknown]
  - Malaise [Unknown]
  - Constipation [Recovering/Resolving]
  - Injection site pain [Recovering/Resolving]
  - Heart rate decreased [Unknown]
  - Injection site induration [Recovered/Resolved]
  - Blood pressure increased [Unknown]
  - Nausea [Recovered/Resolved]

NARRATIVE: CASE EVENT DATE: 20140517
